FAERS Safety Report 15207516 (Version 2)
Quarter: 2018Q3

REPORT INFORMATION
  Report Type: Spontaneous
  Country: US (occurrence: US)
  Receive Date: 20180727
  Receipt Date: 20180822
  Transmission Date: 20181010
  Serious: No
  Sender: FDA-Public Use
  Company Number: US-SA-2018SA203901

PATIENT
  Age: 62 Year
  Sex: Female

DRUGS (2)
  1. KEVZARA [Suspect]
     Active Substance: SARILUMAB
     Indication: RHEUMATOID ARTHRITIS
     Dosage: 150 MG, QOW
     Route: 058
     Dates: start: 20180423
  2. KEVZARA [Suspect]
     Active Substance: SARILUMAB
     Indication: MYOPATHY
     Dosage: 150 UNK
     Route: 058
     Dates: start: 20180601

REACTIONS (5)
  - Condition aggravated [Unknown]
  - Foot deformity [Unknown]
  - Inflammation [Unknown]
  - Exostosis [Unknown]
  - Drug ineffective [Unknown]

NARRATIVE: CASE EVENT DATE: 20180619
